FAERS Safety Report 8727595 (Version 2)
Quarter: 2012Q4

REPORT INFORMATION
  Report Type: Report from Study
  Country: CZ (occurrence: CZ)
  Receive Date: 20120816
  Receipt Date: 20120914
  Transmission Date: 20130627
  Serious: Yes (Hospitalization)
  Sender: FDA-Public Use
  Company Number: CZ-PFIZER INC-2012195596

PATIENT
  Age: 68 Year
  Sex: Male
  Weight: 91 kg

DRUGS (9)
  1. GENOTROPIN [Suspect]
     Indication: HYPOPITUITARISM
     Dosage: 0.4 mg, 7x/week
     Route: 058
     Dates: start: 20010606
  2. UNDESTOR [Concomitant]
     Indication: HYPOGONADISM
     Dosage: UNK
     Dates: start: 19930603
  3. UNDESTOR [Concomitant]
     Indication: BLOOD LUTEINISING HORMONE DECREASED
  4. UNDESTOR [Concomitant]
     Indication: BLOOD FOLLICLE STIMULATING HORMONE DECREASED
  5. LEVOTHYROXINE [Concomitant]
     Indication: BLOOD THYROID STIMULATING HORMONE DECREASED
     Dosage: UNK
     Dates: start: 19931024
  6. HYDROCORTISONE [Concomitant]
     Indication: BLOOD CORTICOTROPHIN DECREASED
     Dosage: UNK
     Dates: start: 19930701
  7. TESTOSTERONE UNDECANOATE [Concomitant]
     Indication: HYPOGONADISM
     Dosage: UNK
     Dates: start: 19931024
  8. FLUVASTATIN [Concomitant]
     Indication: HYPERLIPIDAEMIA
     Dosage: UNK
     Dates: start: 19980701
  9. MAGNESIUM LACTATE [Concomitant]
     Indication: MUSCLE DISORDER
     Dosage: UNK

REACTIONS (1)
  - Cataract [Recovered/Resolved]
